FAERS Safety Report 23049581 (Version 1)
Quarter: 2023Q4

REPORT INFORMATION
  Report Type: Other
  Country: None (occurrence: ES)
  Receive Date: 20231010
  Receipt Date: 20231010
  Transmission Date: 20240110
  Serious: Yes (Other)
  Sender: FDA-Public Use
  Company Number: ES-Appco Pharma LLC-2146882

PATIENT
  Age: 36 Year
  Sex: Male

DRUGS (3)
  1. DOXYCYCLINE [Suspect]
     Active Substance: DOXYCYCLINE
     Indication: Brucellosis
     Route: 065
  2. RIFAMPIN [Suspect]
     Active Substance: RIFAMPIN
     Route: 065
  3. GENTAMICIN [Suspect]
     Active Substance: GENTAMICIN
     Route: 065

REACTIONS (1)
  - Drug ineffective [Unknown]
